FAERS Safety Report 18576141 (Version 1)
Quarter: 2020Q4

REPORT INFORMATION
  Report Type: Spontaneous
  Country: AU (occurrence: AU)
  Receive Date: 20201203
  Receipt Date: 20201203
  Transmission Date: 20210114
  Serious: Yes (Other)
  Sender: FDA-Public Use
  Company Number: AU-LUPIN PHARMACEUTICALS INC.-2020-09496

PATIENT
  Age: 43 Year
  Sex: Male
  Weight: 95 kg

DRUGS (2)
  1. CLARITHROMYCIN. [Suspect]
     Active Substance: CLARITHROMYCIN
     Indication: MYCOBACTERIUM ULCERANS INFECTION
     Dosage: 10.5 MILLIGRAM/KILOGRAM
     Route: 048
  2. RIFAMPIN. [Suspect]
     Active Substance: RIFAMPIN
     Indication: MYCOBACTERIUM ULCERANS INFECTION
     Dosage: 6.3 MILLIGRAM/KILOGRAM
     Route: 048

REACTIONS (1)
  - Treatment failure [Unknown]
